FAERS Safety Report 4867561-X (Version None)
Quarter: 2005Q4

REPORT INFORMATION
  Report Type: 
  Country: None (occurrence: None)
  Receive Date: 20051222
  Receipt Date: 20051205
  Transmission Date: 20060501
  Serious: Yes (Other)
  Sender: FDA-Public Use
  Company Number: 2005168093

PATIENT
  Sex: Female

DRUGS (6)
  1. PROVERA [Suspect]
     Indication: HORMONE REPLACEMENT THERAPY
     Dosage: ORAL
     Route: 048
     Dates: start: 19910101, end: 20030101
  2. MEDROXYPROGESTERONE ACETATE [Suspect]
     Indication: HORMONE REPLACEMENT THERAPY
     Dosage: ORAL
     Route: 048
     Dates: start: 19910101, end: 20030101
  3. PREMARIN [Suspect]
     Indication: HORMONE REPLACEMENT THERAPY
     Dates: start: 19910101, end: 20030101
  4. CYCRIN [Suspect]
     Indication: HORMONE REPLACEMENT THERAPY
     Dates: start: 19910101, end: 20030101
  5. PREMPRO [Suspect]
     Indication: HORMONE REPLACEMENT THERAPY
     Dates: start: 19910101, end: 20030101
  6. ESTRACE [Suspect]
     Indication: HORMONE REPLACEMENT THERAPY
     Dates: start: 19910101, end: 20030101

REACTIONS (1)
  - BREAST CANCER FEMALE [None]
